FAERS Safety Report 22325701 (Version 15)
Quarter: 2025Q2

REPORT INFORMATION
  Report Type: Report from Study
  Country: US (occurrence: US)
  Receive Date: 20230516
  Receipt Date: 20250607
  Transmission Date: 20250717
  Serious: Yes (Hospitalization, Other)
  Sender: TAKEDA
  Company Number: US-TAKEDA-2023TUS017829

PATIENT
  Age: 64 Year
  Sex: Female
  Weight: 103 kg

DRUGS (63)
  1. HUMAN IMMUNOGLOBULIN G\HYALURONIDASE RECOMBINANT HUMAN [Suspect]
     Active Substance: HUMAN IMMUNOGLOBULIN G\HYALURONIDASE (HUMAN RECOMBINANT)
     Indication: Immunodeficiency common variable
     Dosage: 45 GRAM, Q4WEEKS
  2. OXYGEN [Concomitant]
     Active Substance: OXYGEN
  3. ONDANSETRON [Concomitant]
     Active Substance: ONDANSETRON
  4. ETHAMBUTOL [Concomitant]
     Active Substance: ETHAMBUTOL HYDROCHLORIDE
  5. RESTASIS [Concomitant]
     Active Substance: CYCLOSPORINE
  6. TIZANIDINE HYDROCHLORIDE [Concomitant]
     Active Substance: TIZANIDINE HYDROCHLORIDE
  7. COLESTIPOL HYDROCHLORIDE [Concomitant]
     Active Substance: COLESTIPOL HYDROCHLORIDE
  8. RIFAMPIN [Concomitant]
     Active Substance: RIFAMPIN
  9. LIDOCAINE [Concomitant]
     Active Substance: LIDOCAINE
  10. ACETAMINOPHEN [Concomitant]
     Active Substance: ACETAMINOPHEN
  11. DIPHENHYDRAMINE HYDROCHLORIDE [Concomitant]
     Active Substance: DIPHENHYDRAMINE HYDROCHLORIDE
  12. SODIUM CHLORIDE [Concomitant]
     Active Substance: SODIUM CHLORIDE
  13. ONDANSETRON HYDROCHLORIDE [Concomitant]
     Active Substance: ONDANSETRON HYDROCHLORIDE
  14. EPINEPHRINE [Concomitant]
     Active Substance: EPINEPHRINE
  15. LINZESS [Concomitant]
     Active Substance: LINACLOTIDE
  16. AZITHROMYCIN [Concomitant]
     Active Substance: AZITHROMYCIN
  17. FUROSEMIDE [Concomitant]
     Active Substance: FUROSEMIDE
  18. ZINC [Concomitant]
     Active Substance: ZINC
  19. COPPER [Concomitant]
     Active Substance: COPPER
  20. DULOXETINE HYDROCHLORIDE [Concomitant]
     Active Substance: DULOXETINE HYDROCHLORIDE
  21. MONTELUKAST SODIUM [Concomitant]
     Active Substance: MONTELUKAST SODIUM
  22. OMEPRAZOLE [Concomitant]
     Active Substance: OMEPRAZOLE
  23. EZETIMIBE\ROSUVASTATIN [Concomitant]
     Active Substance: EZETIMIBE\ROSUVASTATIN
  24. HYDROXYCHLOROQUINE SULFATE [Concomitant]
     Active Substance: HYDROXYCHLOROQUINE SULFATE
  25. FLOVENT [Concomitant]
     Active Substance: FLUTICASONE PROPIONATE
  26. ALBUTEROL SULFATE [Concomitant]
     Active Substance: ALBUTEROL SULFATE
  27. AZELASTINE HYDROCHLORIDE [Concomitant]
     Active Substance: AZELASTINE HYDROCHLORIDE
  28. TOPAMAX [Concomitant]
     Active Substance: TOPIRAMATE
  29. CHARCOAL [Concomitant]
     Active Substance: ACTIVATED CHARCOAL
  30. PROZAC [Concomitant]
     Active Substance: FLUOXETINE HYDROCHLORIDE
  31. ESTRADIOL\NORETHINDRONE [Concomitant]
     Active Substance: ESTRADIOL\NORETHINDRONE
  32. TRAMADOL HCL [Concomitant]
     Active Substance: TRAMADOL HYDROCHLORIDE
  33. CLONAZEPAM [Concomitant]
     Active Substance: CLONAZEPAM
  34. HYDROCORTISONE [Concomitant]
     Active Substance: HYDROCORTISONE
  35. TRELEGY ELLIPTA [Concomitant]
     Active Substance: FLUTICASONE FUROATE\UMECLIDINIUM BROMIDE\VILANTEROL TRIFENATATE
  36. GABAPENTIN [Concomitant]
     Active Substance: GABAPENTIN
  37. LEVOTHYROXINE SODIUM [Concomitant]
     Active Substance: LEVOTHYROXINE SODIUM
  38. VITAMIN B [Concomitant]
     Active Substance: VITAMIN B
  39. POTASSIUM CHLORIDE [Concomitant]
     Active Substance: POTASSIUM CHLORIDE
  40. YUPELRI [Concomitant]
     Active Substance: REVEFENACIN
  41. TYLENOL [Concomitant]
     Active Substance: ACETAMINOPHEN
  42. PROAIR HFA [Concomitant]
     Active Substance: ALBUTEROL SULFATE
  43. VITAMIN D2 [Concomitant]
     Active Substance: ERGOCALCIFEROL
  44. ZENPEP [Concomitant]
     Active Substance: PANCRELIPASE AMYLASE\PANCRELIPASE LIPASE\PANCRELIPASE PROTEASE
  45. FLUOXETINE HYDROCHLORIDE [Concomitant]
     Active Substance: FLUOXETINE HYDROCHLORIDE
  46. SALINE [Concomitant]
     Active Substance: SODIUM CHLORIDE
  47. TIZANIDINE [Concomitant]
     Active Substance: TIZANIDINE
  48. COLESTIPOL [Concomitant]
     Active Substance: COLESTIPOL
  49. DULOXETINE [Concomitant]
     Active Substance: DULOXETINE
  50. MONTELUKAST [Concomitant]
     Active Substance: MONTELUKAST
  51. HYDROXYCHLOROQUINE SULFATE [Concomitant]
     Active Substance: HYDROXYCHLOROQUINE SULFATE
  52. ALBUTEROL [Concomitant]
     Active Substance: ALBUTEROL
  53. AZELASTINE [Concomitant]
     Active Substance: AZELASTINE
  54. TRAMADOL [Concomitant]
     Active Substance: TRAMADOL
  55. LEVOTHYROXINE [Concomitant]
     Active Substance: LEVOTHYROXINE
  56. VITAMIN B12 [Concomitant]
     Active Substance: CYANOCOBALAMIN
  57. QVAR [Concomitant]
     Active Substance: BECLOMETHASONE DIPROPIONATE
  58. ASPIRIN [Concomitant]
     Active Substance: ASPIRIN
  59. ETHAMBUTOL HYDROCHLORIDE [Concomitant]
     Active Substance: ETHAMBUTOL HYDROCHLORIDE
  60. MECLIZINE HYDROCHLORIDE [Concomitant]
     Active Substance: MECLIZINE HYDROCHLORIDE
  61. COLACE [Concomitant]
     Active Substance: DOCUSATE SODIUM
  62. BOTOX [Concomitant]
     Active Substance: ONABOTULINUMTOXINA
  63. TYLENOL EXTRA STRENGTH [Concomitant]
     Active Substance: ACETAMINOPHEN

REACTIONS (19)
  - Pneumonia [Not Recovered/Not Resolved]
  - Atrial fibrillation [Unknown]
  - Mycobacterium avium complex infection [Not Recovered/Not Resolved]
  - Pulmonary tuberculosis [Not Recovered/Not Resolved]
  - Transient ischaemic attack [Unknown]
  - Oral discomfort [Unknown]
  - Gingival pain [Unknown]
  - Nasal discomfort [Unknown]
  - Urinary tract infection [Unknown]
  - Sinusitis [Unknown]
  - Respiratory tract infection [Unknown]
  - Upper respiratory tract infection [Unknown]
  - Productive cough [Unknown]
  - Asthma [Unknown]
  - Oropharyngeal pain [Unknown]
  - Hypotension [Unknown]
  - Diarrhoea [Unknown]
  - Migraine [Unknown]
  - Fatigue [Unknown]

NARRATIVE: CASE EVENT DATE: 20240203
